FAERS Safety Report 4330840-9 (Version None)
Quarter: 2004Q1

REPORT INFORMATION
  Report Type: 
  Country: None (occurrence: None)
  Receive Date: 20040331
  Receipt Date: 20040312
  Transmission Date: 20041129
  Serious: Yes (Hospitalization)
  Sender: FDA-Public Use
  Company Number: US_0403101547

PATIENT
  Age: 50 Year
  Sex: Male

DRUGS (15)
  1. PROZAC [Suspect]
     Indication: DEPRESSION
     Dates: start: 20000101
  2. INTERFERON GAMMA-1B [Concomitant]
  3. PRILOSEC [Concomitant]
  4. SPIRONOLACTONE [Concomitant]
  5. DEMEROL [Concomitant]
  6. XANAX [Concomitant]
  7. LEVSIN (HYSOCYAMINE SULFATE) [Concomitant]
  8. LASIX [Concomitant]
  9. PROPRANOLOL [Concomitant]
  10. IBUPROFEN [Concomitant]
  11. ROBITUSSIN AC ^METRO DRUG^ [Concomitant]
  12. ZITHROMAX [Concomitant]
  13. MILK TRISTLE (SILYBUM MARIANUM) [Concomitant]
  14. METHADONE HCL [Concomitant]
  15. VICOPROFEN [Concomitant]

REACTIONS (27)
  - ANXIETY [None]
  - DELIRIUM [None]
  - DIABETES MELLITUS [None]
  - GASTROINTESTINAL HAEMORRHAGE [None]
  - HAEMATEMESIS [None]
  - HAEMOGLOBIN DECREASED [None]
  - HEPATOSPLENOMEGALY [None]
  - HYPERTENSION [None]
  - INSOMNIA [None]
  - INTERNATIONAL NORMALISED RATIO DECREASED [None]
  - JAUNDICE [None]
  - LEUKAEMOID REACTION [None]
  - LEUKOCYTOSIS [None]
  - LOOSE STOOLS [None]
  - MEDICATION ERROR [None]
  - MITRAL VALVE INCOMPETENCE [None]
  - OCULAR ICTERUS [None]
  - PAIN IN EXTREMITY [None]
  - PITTING OEDEMA [None]
  - POLLAKIURIA [None]
  - PYREXIA [None]
  - SELF-MEDICATION [None]
  - STRESS SYMPTOMS [None]
  - TELANGIECTASIA [None]
  - TRICUSPID VALVE INCOMPETENCE [None]
  - VARICES OESOPHAGEAL [None]
  - VENTRICULAR HYPERTROPHY [None]
